FAERS Safety Report 12991066 (Version 10)
Quarter: 2017Q1

REPORT INFORMATION
  Report Type: Spontaneous
  Country: IT (occurrence: IT)
  Receive Date: 20161201
  Receipt Date: 20170130
  Transmission Date: 20170428
  Serious: Yes (Other)
  Sender: FDA-Public Use
  Company Number: IT-TEVA-715434ISR

PATIENT
  Age: 25 Year
  Sex: Female

DRUGS (7)
  1. LEVOFLOXACIN. [Suspect]
     Active Substance: LEVOFLOXACIN
     Indication: PRODUCT USED FOR UNKNOWN INDICATION
     Dosage: 1000 MILLIGRAM DAILY; 1000 TOTAL
     Route: 048
     Dates: start: 20161029, end: 20161029
  2. AZITHROMYCIN ANHYDROUS. [Suspect]
     Active Substance: AZITHROMYCIN ANHYDROUS
     Indication: PRODUCT USED FOR UNKNOWN INDICATION
     Route: 048
     Dates: start: 20161029, end: 20161029
  3. LEVOTHYROXINE. [Suspect]
     Active Substance: LEVOTHYROXINE
     Indication: PRODUCT USED FOR UNKNOWN INDICATION
     Dosage: 750 MICROGRAM DAILY;
     Route: 048
     Dates: start: 20161029, end: 20161029
  4. PLASIL 10 MG COMPRESSE-SANOFI S.P.A [Suspect]
     Active Substance: METOCLOPRAMIDE
     Indication: PRODUCT USED FOR UNKNOWN INDICATION
     Dosage: 24 DOSAGE FORMS DAILY; 10 MG TABLETS AT A DOSE OF 24 DF TOTAL
     Route: 048
     Dates: start: 20161029, end: 20161029
  5. MYLICONGAS 40 MG COMPRESSE MASTICABILI- JOHNSON AND JOHNSON [Suspect]
     Active Substance: DIMETHICONE
     Indication: PRODUCT USED FOR UNKNOWN INDICATION
     Dosage: 25 DOSAGE FORMS DAILY; 40 MILLIGRAM CHEWABLE TABLETS, 25 DF TOTAL
     Route: 048
     Dates: start: 20161029, end: 20161029
  6. IBUPROFEN. [Suspect]
     Active Substance: IBUPROFEN
     Indication: PRODUCT USED FOR UNKNOWN INDICATION
     Route: 048
     Dates: start: 20161029, end: 20161029
  7. KLAIRA - BAYER S.P.A. [Suspect]
     Active Substance: DIENOGEST\ESTRADIOL VALERATE
     Indication: PRODUCT USED FOR UNKNOWN INDICATION
     Route: 048
     Dates: start: 20161029, end: 20161029

REACTIONS (3)
  - Intentional self-injury [Recovering/Resolving]
  - Psychomotor skills impaired [Recovering/Resolving]
  - Drug abuse [Recovering/Resolving]

NARRATIVE: CASE EVENT DATE: 20161029
